FAERS Safety Report 7410229-6 (Version None)
Quarter: 2011Q2

REPORT INFORMATION
  Report Type: 
  Country: None (occurrence: None)
  Receive Date: 20110412
  Receipt Date: 20110330
  Transmission Date: 20111010
  Serious: Yes (Congenital Anomaly)
  Sender: FDA-Public Use
  Company Number: US-WATSON-2011-05041

PATIENT

DRUGS (1)
  1. OXYCODONE HCL [Suspect]
     Indication: DRUG EXPOSURE DURING PREGNANCY
     Dosage: UNK
     Route: 064

REACTIONS (5)
  - HYDROCEPHALUS [None]
  - SPINA BIFIDA [None]
  - GLAUCOMA [None]
  - CONGENITAL CARDIOVASCULAR ANOMALY [None]
  - GASTROSCHISIS [None]
